FAERS Safety Report 8547252-4 (Version None)
Quarter: 2012Q3

REPORT INFORMATION
  Report Type: 
  Country: None (occurrence: None)
  Receive Date: 20120727
  Receipt Date: 20120301
  Transmission Date: 20120928
  Serious: No
  Sender: FDA-Public Use
  Company Number: US-ASTRAZENECA-2012SE14501

PATIENT
  Age: 55 Year
  Sex: Male

DRUGS (7)
  1. SEROQUEL XR [Suspect]
     Indication: BIPOLAR DISORDER
     Route: 048
     Dates: start: 20111101
  2. XANAX [Suspect]
     Indication: DEPRESSION
     Dosage: 0.5 M/1 MG AT NIGHT
     Route: 065
  3. PREVACID [Concomitant]
  4. LAMICTAL [Concomitant]
  5. SEROQUEL XR [Suspect]
     Route: 048
  6. CELEXA [Concomitant]
     Indication: DEPRESSION
  7. SEROQUEL XR [Suspect]
     Route: 048
     Dates: start: 20110101

REACTIONS (3)
  - DRUG DOSE OMISSION [None]
  - PANIC ATTACK [None]
  - CHEST PAIN [None]
